FAERS Safety Report 7074725-6 (Version None)
Quarter: 2010Q4

REPORT INFORMATION
  Report Type: 
  Country: None (occurrence: None)
  Receive Date: 20101029
  Receipt Date: 20101008
  Transmission Date: 20110411
  Serious: Yes (Hospitalization)
  Sender: FDA-Public Use
  Company Number: IN-ASTRAZENECA-2010SE44311

PATIENT
  Age: 13407 Day
  Sex: Female

DRUGS (2)
  1. SEROQUEL XR [Suspect]
     Indication: BIPOLAR I DISORDER
     Route: 048
     Dates: start: 20100821, end: 20100917
  2. PLACEBO [Suspect]
     Indication: BIPOLAR I DISORDER
     Dosage: TWO TIMES A DAY
     Route: 048
     Dates: start: 20100821, end: 20100917

REACTIONS (1)
  - MANIA [None]
